FAERS Safety Report 18330024 (Version 1)
Quarter: 2020Q3

REPORT INFORMATION
  Report Type: Spontaneous
  Country: CN (occurrence: CN)
  Receive Date: 20200930
  Receipt Date: 20200930
  Transmission Date: 20201103
  Serious: Yes (Life-Threatening)
  Sender: FDA-Public Use
  Company Number: CN-ROCHE-2687547

PATIENT
  Age: 63 Year
  Sex: Male
  Weight: 62 kg

DRUGS (6)
  1. XELODA [Suspect]
     Active Substance: CAPECITABINE
     Dosage: FIRST?LINE TREATMENTSECOND?LINE TREATMENT
     Route: 048
     Dates: start: 20200116
  2. AVASTIN [Suspect]
     Active Substance: BEVACIZUMAB
     Indication: MALIGNANT ANORECTAL NEOPLASM
     Dosage: FIRST?LINE TREATMENT
     Route: 041
  3. AVASTIN [Suspect]
     Active Substance: BEVACIZUMAB
     Dosage: SECOND?LINE TREATMENT
     Route: 041
     Dates: start: 20200116
  4. IRINOTECAN HYDROCHLORIDE. [Suspect]
     Active Substance: IRINOTECAN HYDROCHLORIDE
     Indication: MALIGNANT ANORECTAL NEOPLASM
     Dosage: SECOND?LINE TREATMENT
     Route: 041
     Dates: start: 20200116
  5. OXALIPLATIN. [Concomitant]
     Active Substance: OXALIPLATIN
     Indication: MALIGNANT ANORECTAL NEOPLASM
     Dosage: FIRST?LINE TREATMENT
  6. XELODA [Suspect]
     Active Substance: CAPECITABINE
     Indication: MALIGNANT ANORECTAL NEOPLASM
     Dosage: FIRST?LINE TREATMENT
     Route: 048

REACTIONS (3)
  - White blood cell count decreased [Not Recovered/Not Resolved]
  - Myelosuppression [Not Recovered/Not Resolved]
  - Platelet count decreased [Not Recovered/Not Resolved]

NARRATIVE: CASE EVENT DATE: 20200331
